FAERS Safety Report 4855156-3 (Version None)
Quarter: 2005Q4

REPORT INFORMATION
  Report Type: 
  Country: None (occurrence: None)
  Receive Date: 20051125
  Receipt Date: 20041227
  Transmission Date: 20060501
  Serious: Yes (Disabling)
  Sender: FDA-Public Use
  Company Number: US-JNJFOC-20040705119

PATIENT
  Age: 73 Year
  Sex: Female
  Weight: 101.1521 kg

DRUGS (1)
  1. LEVAQUIN [Suspect]
     Indication: UPPER RESPIRATORY TRACT INFECTION
     Dosage: 500 MG, 1 IN 1 DAY, ORAL
     Route: 048
     Dates: start: 20040227, end: 20040307

REACTIONS (3)
  - PAIN [None]
  - PAIN IN EXTREMITY [None]
  - RESPIRATORY DISORDER [None]
